FAERS Safety Report 7090231-7 (Version None)
Quarter: 2010Q4

REPORT INFORMATION
  Report Type: 
  Country: None (occurrence: None)
  Receive Date: 20101104
  Receipt Date: 20101104
  Transmission Date: 20110411
  Serious: Yes (Other)
  Sender: FDA-Public Use
  Company Number: None

PATIENT
  Age: 33 Year
  Sex: Female
  Weight: 59.5 kg

DRUGS (1)
  1. ADDERALL 10 [Suspect]
     Indication: ATTENTION DEFICIT/HYPERACTIVITY DISORDER
     Dosage: 7.5 MG QD ORAL
     Route: 048
     Dates: start: 20100601, end: 20101022

REACTIONS (4)
  - ASTHMA [None]
  - CHEST DISCOMFORT [None]
  - DYSPNOEA [None]
  - NO THERAPEUTIC RESPONSE [None]
